FAERS Safety Report 20906113 (Version 1)
Quarter: 2022Q2

REPORT INFORMATION
  Report Type: Spontaneous
  Country: US (occurrence: US)
  Receive Date: 20220602
  Receipt Date: 20220602
  Transmission Date: 20220721
  Serious: No
  Sender: FDA-Public Use
  Company Number: US-COLLEGIUM PHARMACEUTICAL, INC.-2022CGM00087

PATIENT
  Sex: Female
  Weight: 97.506 kg

DRUGS (11)
  1. XTAMPZA ER [Suspect]
     Active Substance: OXYCODONE
     Indication: Neck pain
     Dosage: 36 MG, 2X/DAY (EVERY 12 HOURS)
     Route: 048
     Dates: start: 2019
  2. XTAMPZA ER [Suspect]
     Active Substance: OXYCODONE
     Indication: Back pain
  3. XTAMPZA ER [Suspect]
     Active Substance: OXYCODONE
     Indication: Arthralgia
  4. METOPROLOL [Concomitant]
     Active Substance: METOPROLOL
  5. OXYCODONE [Concomitant]
     Active Substance: OXYCODONE
  6. LEVOTHYROXINE [Concomitant]
     Active Substance: LEVOTHYROXINE
  7. DOXEPIN [Concomitant]
     Active Substance: DOXEPIN
  8. LYRICA [Concomitant]
     Active Substance: PREGABALIN
  9. METHOCARBAMOL [Concomitant]
     Active Substance: METHOCARBAMOL
  10. IBUPROFEN [Concomitant]
     Active Substance: IBUPROFEN
  11. ACETAMINOPHEN [Concomitant]
     Active Substance: ACETAMINOPHEN

REACTIONS (4)
  - Mood altered [Not Recovered/Not Resolved]
  - Pain [Not Recovered/Not Resolved]
  - Product dose omission issue [Unknown]
  - Headache [Not Recovered/Not Resolved]
